FAERS Safety Report 11379740 (Version 1)
Quarter: 2015Q3

REPORT INFORMATION
  Report Type: Spontaneous
  Country: IN (occurrence: IN)
  Receive Date: 20150814
  Receipt Date: 20150814
  Transmission Date: 20151125
  Serious: Yes (Other)
  Sender: FDA-Public Use
  Company Number: IN-CIPLA LTD.-2015IN06405

PATIENT

DRUGS (7)
  1. FRUSEMIDE [Suspect]
     Active Substance: FUROSEMIDE
     Dosage: 40 MG, UNK
  2. AMIODARONE [Suspect]
     Active Substance: AMIODARONE
     Dosage: 200 MG, UNK
  3. ATORVASTATIN [Suspect]
     Active Substance: ATORVASTATIN
     Dosage: 20 MG, UNK
  4. MIXTARD HUMAN 70/30 [Suspect]
     Active Substance: INSULIN HUMAN
     Dosage: UNK
  5. AMLODIPINE [Suspect]
     Active Substance: AMLODIPINE BESYLATE
     Dosage: 10 MG, UNK
  6. CLOPIDOGREL [Suspect]
     Active Substance: CLOPIDOGREL BISULFATE
     Dosage: 75 MG, UNK
  7. ACITROM [Suspect]
     Active Substance: ACENOCOUMAROL
     Dosage: 4 MG, UNK

REACTIONS (2)
  - Haematoma [Recovered/Resolved]
  - Mouth haemorrhage [Recovered/Resolved]
